FAERS Safety Report 9249135 (Version 1)
Quarter: 2013Q2

REPORT INFORMATION
  Report Type: Report from Study
  Country: US (occurrence: US)
  Receive Date: 20130423
  Receipt Date: 20130423
  Transmission Date: 20140414
  Serious: Yes (Hospitalization)
  Sender: FDA-Public Use
  Company Number: US-ACTELION-A-NJ2013-82189

PATIENT
  Age: 40 Year
  Sex: Female

DRUGS (2)
  1. VELETRI [Suspect]
     Indication: COR PULMONALE CHRONIC
     Route: 041
  2. SILDENAFIL [Concomitant]

REACTIONS (5)
  - Cardio-respiratory arrest [Unknown]
  - Device malfunction [Unknown]
  - Right ventricular failure [Unknown]
  - Chest pain [Unknown]
  - Dyspnoea [Unknown]
